FAERS Safety Report 4745997-5 (Version None)
Quarter: 2005Q3

REPORT INFORMATION
  Report Type: 
  Country: None (occurrence: None)
  Receive Date: 20050816
  Receipt Date: 20050511
  Transmission Date: 20060218
  Serious: Yes (Other)
  Sender: FDA-Public Use
  Company Number: US-MERCK-0505USA01800

PATIENT
  Age: 58 Year
  Sex: Male
  Weight: 61 kg

DRUGS (7)
  1. VIOXX [Suspect]
     Indication: ARTHRITIS
     Route: 048
     Dates: start: 20000101, end: 20041001
  2. LIPITOR [Concomitant]
     Route: 065
  3. ATENOLOL MSD [Concomitant]
     Route: 065
  4. ASPIRIN [Concomitant]
     Route: 065
  5. IBUPROFEN [Concomitant]
     Route: 065
  6. CELEBREX [Suspect]
     Route: 065
  7. ATENOLOL [Concomitant]
     Route: 065

REACTIONS (1)
  - MYOCARDIAL INFARCTION [None]
